FAERS Safety Report 8904627 (Version 2)
Quarter: 2013Q1

REPORT INFORMATION
  Report Type: Spontaneous
  Country: US (occurrence: US)
  Receive Date: 20121113
  Receipt Date: 20130102
  Transmission Date: 20140127
  Serious: No
  Sender: FDA-Public Use
  Company Number: US-PFIZER INC-2012280087

PATIENT
  Age: 68 Year
  Sex: Male
  Weight: 117 kg

DRUGS (41)
  1. FLECTOR [Suspect]
     Indication: BACK PAIN
     Dosage: UNKNOWN DOSE; DAILY
     Route: 062
     Dates: start: 2012
  2. LIDOCAINE [Concomitant]
     Indication: PAIN
     Dosage: 5 %, AS NEEDED (APPLY SMALL AMOUNT DAILY)
     Route: 061
  3. LIDOCAINE [Concomitant]
     Indication: DISCOMFORT
  4. METFORMIN HYDROCHLORIDE [Concomitant]
     Indication: DIABETES MELLITUS
     Dosage: 1000 MG, ONE HALF TABLET 2X/DAY
     Route: 048
  5. METOPROLOL SUCCINATE [Concomitant]
     Indication: BLOOD PRESSURE
     Dosage: 100 MG, ONE HALF TABLET 1X/DAY
     Route: 048
  6. MORPHINE SULFATE [Concomitant]
     Indication: PAIN
     Dosage: 30 MG, 1X/DAY (ONE TABLET)
     Route: 048
  7. NIACIN [Concomitant]
     Indication: BLOOD CHOLESTEROL
     Dosage: 4 TABLETS 500 MG AT BEDTIME
     Route: 048
  8. OMEPRAZOLE [Concomitant]
     Dosage: 20 MG, 2X/DAY (ONE CAPSULE 30 MINUTES BEFORE BREAKFAST)
     Route: 048
  9. SIMETHICONE [Concomitant]
     Indication: FLATULENCE
     Dosage: 80 MG, 4X/DAY (ONE TABLET CHEWABLE)
     Route: 048
  10. SIMVASTATIN [Concomitant]
     Indication: BLOOD CHOLESTEROL
     Dosage: 40 MG, 1X/DAY (ONE HALF TABLET AT BEDTIME)
     Route: 048
  11. SODIUM FLUORIDE [Concomitant]
     Indication: DENTAL CARIES
     Dosage: 1.1% (APPLY SMALL AMOUNT TO MOUTH)
     Route: 048
  12. TERAZOSIN HYDROCHLORIDE [Concomitant]
     Indication: PROSTATIC DISORDER
     Dosage: 5 MG, 1X/DAY (TAKE ONE CAPSULE AT BED TIME)
     Route: 048
  13. TESTOSTERONE ENANTATE [Concomitant]
     Indication: HORMONE REPLACEMENT THERAPY
     Dosage: 200 MG/1 ML (IN OIL)
     Route: 030
  14. TIOTROPIUM [Concomitant]
     Dosage: 18 UG, 1X/DAY (INHALE ONE CAPSULE BY ORAL INHALATION)
     Route: 048
  15. AMBIEN [Concomitant]
     Indication: SLEEP DISORDER
     Dosage: 10 MG, 1X/DAY (TAKE ONE TABLET AT BED TIME)
     Route: 048
  16. ARMODAFINIL [Concomitant]
     Dosage: UNK
     Route: 048
  17. CELECOXIB [Concomitant]
     Dosage: DAILY
     Route: 048
  18. OMEGA 3 [Concomitant]
     Dosage: 100 MG, 4X/DAY
     Route: 048
  19. VITAMIN A [Concomitant]
     Dosage: UNK
     Route: 048
  20. VITAMIN E [Concomitant]
     Dosage: UNK
     Route: 048
  21. ABSORBASE [Concomitant]
     Indication: DRY SKIN
     Dosage: (APPLY SMALL AMOUNT TOPICALLY)
     Route: 061
  22. ALBUTEROL [Concomitant]
     Indication: DYSPNOEA
     Dosage: 90 UG, 4X/DAY (INHALE 2 PUFFS AS NEEDED)
     Route: 048
  23. AMITRIPTYLINE HYDROCHLORIDE [Concomitant]
     Indication: SLEEP DISORDER
     Dosage: 25 MG, 1X/DAY (TAKE 3 TABLETS AT BED TIME)
     Route: 048
  24. AMITRIPTYLINE HYDROCHLORIDE [Concomitant]
     Indication: PAIN
  25. AMLODIPINE BESILATE [Concomitant]
     Indication: BLOOD PRESSURE
     Dosage: 5 MG, 1X/DAY (TAKE ONE AND ONE HALF TABLET DAILY)
  26. ASCORBIC ACID [Concomitant]
     Indication: VITAMIN SUPPLEMENTATION
     Dosage: 500 MG, 3X/DAY (TAKE ONE TABLET)
     Route: 048
  27. CAPSAICIN [Concomitant]
     Indication: ANALGESIC THERAPY
     Dosage: APPLY SMALL AMOUNT AS NEEDED
     Route: 061
  28. CLOPIDOGREL BISULFATE [Concomitant]
     Indication: THROMBOSIS
     Dosage: 75 MG, 1X/DAY (TAKE ONE TABLET)
     Route: 048
  29. CYANOCOBALAMIN [Concomitant]
     Dosage: 500 UG, 1X/DAY (TAKE TWO TABLETS EVERDAY BETWEEN MEALS)
     Route: 048
  30. DABIGATRAN ETEXILATE [Concomitant]
     Indication: BLOOD DISORDER
     Dosage: 150 MG, 2X/DAY (TAKE ONE CAPSULE)
     Route: 048
  31. FLUNISOLIDE [Concomitant]
     Indication: DYSPNOEA
     Dosage: SPRAY 2 SPRAYS EACH NOSTRIL DAILY
     Route: 045
  32. FLUOCINONIDE [Concomitant]
     Indication: SKIN DISORDER
     Dosage: APPLY SMALL AMOUNT TOPICALLY
     Route: 061
  33. FOLIC ACID [Concomitant]
     Dosage: 1 MG, DAILY (ONE TABLET)
     Route: 048
  34. GABAPENTIN [Concomitant]
     Indication: CONVULSION
     Dosage: 400 MG, 3X/DAY (TAKE ONE CAPSULE)
     Route: 048
  35. GLYBURIDE [Concomitant]
     Indication: DIABETES MELLITUS
     Dosage: 5 MG, (TAKE ONE HALF TABLET DAILY)
     Route: 048
  36. LISINOPRIL W/HYDROCHLOROTHIAZIDE [Concomitant]
     Indication: BLOOD PRESSURE
     Dosage: 20 MG, 1X/DAY (TAKE ONE TABLET)
     Route: 048
  37. ACETAMINOPHEN W/HYDROCODONE BITARTRATE [Concomitant]
     Indication: PAIN
     Dosage: 500 MG, 4X/DAY (TAKE ONE TABLET AS NEEDED)
     Route: 048
  38. INSULIN GLARGINE [Concomitant]
     Indication: DIABETES MELLITUS
     Dosage: 100 UNIT/ML, INJECT 10 UNITS AT BED TIME
     Route: 058
  39. INSULIN HUMAN [Concomitant]
     Indication: DIABETES MELLITUS
     Dosage: 0.5 ML 30 G
     Route: 058
  40. METHYL SALICYLATE [Concomitant]
     Indication: ARTHRALGIA
  41. SALMETEROL XINAFOATE/FLUTICASONE PROPIONATE [Concomitant]
     Route: 048

REACTIONS (1)
  - Blood glucose increased [Unknown]
